FAERS Safety Report 21736899 (Version 1)
Quarter: 2022Q4

REPORT INFORMATION
  Report Type: Spontaneous
  Country: FR (occurrence: FR)
  Receive Date: 20221216
  Receipt Date: 20221216
  Transmission Date: 20230113
  Serious: Yes (Death, Other)
  Sender: FDA-Public Use
  Company Number: None

PATIENT
  Age: 94 Year
  Sex: Female

DRUGS (12)
  1. BISOPROLOL FUMARATE [Suspect]
     Active Substance: BISOPROLOL FUMARATE
     Indication: Hypertension
     Dosage: UNIT DOSE : 1.25 MG,  FREQUENCY TIME : 1 DAY, DURATION : 12 DAYS
     Route: 065
     Dates: start: 20221028, end: 20221109
  2. LOSARTAN POTASSIUM [Suspect]
     Active Substance: LOSARTAN POTASSIUM
     Indication: Hypertension
     Dosage: UNIT DOSE : 50 MG,  FREQUENCY TIME : 1 DAY, DURATION : 12 DAYS
     Route: 065
     Dates: start: 20221028, end: 20221109
  3. NICARDIPINE HYDROCHLORIDE [Suspect]
     Active Substance: NICARDIPINE HYDROCHLORIDE
     Indication: Hypertension
     Dosage: UNIT DOSE AND STRENGTH :50 MG, FREQUENCY TIME :  12 HOURS, DURATION : 12 DAYS
     Dates: start: 20221028, end: 20221109
  4. FOLIC ACID [Concomitant]
     Active Substance: FOLIC ACID
     Indication: Product used for unknown indication
  5. ZOPICLONE [Concomitant]
     Active Substance: ZOPICLONE
     Indication: Product used for unknown indication
  6. LEVOTHYROXINE [Concomitant]
     Active Substance: LEVOTHYROXINE
     Indication: Product used for unknown indication
     Dosage: STRENGTH : 50 MICROGRAMS, SCORED TABLET
  7. LAMALINE [Concomitant]
     Indication: Product used for unknown indication
  8. POLYETHYLENE GLYCOL 4000 [Concomitant]
     Active Substance: POLYETHYLENE GLYCOL 4000
     Indication: Product used for unknown indication
     Dosage: IN SACHET-DOSE, STRENGTH : 4 GRAM
  9. XARELTO [Concomitant]
     Active Substance: RIVAROXABAN
     Indication: Product used for unknown indication
  10. CARRAGEENAN\LIDOCAINE\TITANIUM\ZINC [Concomitant]
     Active Substance: CARRAGEENAN\LIDOCAINE\TITANIUM\ZINC
     Indication: Product used for unknown indication
     Dosage: STRENGTH : 2 PERCENT
  11. ALBUTEROL [Concomitant]
     Active Substance: ALBUTEROL
     Indication: Product used for unknown indication
  12. BECOTIDBECOTIDE [Concomitant]
     Indication: Product used for unknown indication
     Dosage: BECOTIDE 250 MICROGRAMS/DOSE, SOLUTION FOR INHALATION IN A PRESSURIZED BOTTLE

REACTIONS (4)
  - Hypotension [Fatal]
  - Asthenia [Not Recovered/Not Resolved]
  - Product administration error [Recovered/Resolved]
  - Product dispensing error [Recovered/Resolved]

NARRATIVE: CASE EVENT DATE: 20221028
